FAERS Safety Report 11835072 (Version 2)
Quarter: 2019Q4

REPORT INFORMATION
  Report Type: Spontaneous
  Country: BR (occurrence: BR)
  Receive Date: 20151215
  Receipt Date: 20191224
  Transmission Date: 20200122
  Serious: Yes (Hospitalization, Other)
  Sender: FDA-Public Use
  Company Number: BR-ROCHE-1675811

PATIENT
  Age: 79 Year
  Sex: Female
  Weight: 51 kg

DRUGS (6)
  1. VALIUM [Suspect]
     Active Substance: DIAZEPAM
     Route: 065
     Dates: start: 1985
  2. VALIUM [Suspect]
     Active Substance: DIAZEPAM
     Route: 065
  3. VALIUM [Suspect]
     Active Substance: DIAZEPAM
     Route: 065
  4. CORTISONE [Suspect]
     Active Substance: CORTISONE
     Indication: PRURITUS
     Route: 061
  5. DEPAKENE [Concomitant]
     Active Substance: VALPROIC ACID
  6. VALIUM [Suspect]
     Active Substance: DIAZEPAM
     Indication: ANXIETY
     Route: 065

REACTIONS (15)
  - Ureteric injury [Unknown]
  - Glaucoma [Unknown]
  - Intraocular pressure increased [Unknown]
  - Renal haematoma [Unknown]
  - Renal disorder [Unknown]
  - Post-traumatic stress disorder [Unknown]
  - Nephrolithiasis [Unknown]
  - Drug dependence [Unknown]
  - Incorrect route of product administration [Unknown]
  - Tinnitus [Recovered/Resolved]
  - Pruritus [Unknown]
  - Intentional product use issue [Unknown]
  - Kidney infection [Unknown]
  - Nosocomial infection [Recovered/Resolved]
  - Optic nerve disorder [Unknown]

NARRATIVE: CASE EVENT DATE: 20151208
